FAERS Safety Report 21259282 (Version 1)
Quarter: 2022Q3

REPORT INFORMATION
  Report Type: Spontaneous
  Country: US (occurrence: US)
  Receive Date: 20220826
  Receipt Date: 20220826
  Transmission Date: 20221026
  Serious: No
  Sender: FDA-Public Use
  Company Number: US-PFIZER INC-PV202200050194

PATIENT
  Age: 53 Year
  Sex: Female

DRUGS (1)
  1. XELJANZ XR [Suspect]
     Active Substance: TOFACITINIB CITRATE
     Indication: Rheumatoid arthritis
     Dosage: 11 MG, DAILY
     Route: 048
     Dates: start: 2021

REACTIONS (15)
  - Condition aggravated [Unknown]
  - Feeling abnormal [Unknown]
  - Headache [Unknown]
  - Oropharyngeal pain [Unknown]
  - Pyrexia [Unknown]
  - Ageusia [Unknown]
  - Cough [Not Recovered/Not Resolved]
  - Sinus congestion [Unknown]
  - Paranasal sinus hypersecretion [Unknown]
  - Liver function test abnormal [Unknown]
  - Blood cholesterol increased [Unknown]
  - Arthritis [Unknown]
  - Swelling [Unknown]
  - Skin warm [Unknown]
  - Tooth infection [Unknown]

NARRATIVE: CASE EVENT DATE: 20220101
